FAERS Safety Report 4600612-6 (Version None)
Quarter: 2005Q1

REPORT INFORMATION
  Report Type: 
  Country: None (occurrence: None)
  Receive Date: 20050304
  Receipt Date: 20050222
  Transmission Date: 20050727
  Serious: Yes (Other)
  Sender: FDA-Public Use
  Company Number: 2005017473

PATIENT
  Age: 69 Year
  Sex: Male

DRUGS (8)
  1. XALATAN [Suspect]
     Indication: GLAUCOMA
     Dosage: 1 DROP, INTRAOCULAR
     Route: 031
     Dates: start: 20010216
  2. FLUNITRAZEPAM (FLUNITRAZEPAM) [Concomitant]
  3. ALPRAZOLAM [Concomitant]
  4. TRIAZOLAM [Concomitant]
  5. SULPIRIDE (SULPIRIDE) [Concomitant]
  6. METILDIGOXIN (METILDIGOXIN) [Concomitant]
  7. TICLOPIDINE HCL [Concomitant]
  8. WARFARIN SODIUM [Concomitant]

REACTIONS (4)
  - CEREBRAL INFARCTION [None]
  - CORNEAL DEGENERATION [None]
  - CORNEAL OPACITY [None]
  - HEMIANOPIA HOMONYMOUS [None]
